FAERS Safety Report 16559516 (Version 4)
Quarter: 2019Q3

REPORT INFORMATION
  Report Type: Spontaneous
  Country: HU (occurrence: HU)
  Receive Date: 20190711
  Receipt Date: 20190722
  Transmission Date: 20191004
  Serious: Yes (Other)
  Sender: FDA-Public Use
  Company Number: PHHY2019HU135895

PATIENT
  Age: 32 Year
  Sex: Male

DRUGS (7)
  1. ISOSORBIDE. [Concomitant]
     Active Substance: ISOSORBIDE
     Indication: NON-COMPACTION CARDIOMYOPATHY
     Dosage: UNK
     Route: 005
  2. CARVEDILOL. [Suspect]
     Active Substance: CARVEDILOL
     Indication: NON-COMPACTION CARDIOMYOPATHY
     Route: 065
  3. DIHYDRALAZINE [Concomitant]
     Active Substance: DIHYDRALAZINE
     Indication: NON-COMPACTION CARDIOMYOPATHY
     Dosage: UNK
     Route: 065
  4. ENTRESTO [Suspect]
     Active Substance: SACUBITRIL\VALSARTAN
     Indication: PRODUCT USED FOR UNKNOWN INDICATION
     Route: 065
  5. SPIRONOLACTONE. [Concomitant]
     Active Substance: SPIRONOLACTONE
     Indication: NON-COMPACTION CARDIOMYOPATHY
     Dosage: UNK
     Route: 065
  6. TRIMETAZIDINE [Concomitant]
     Active Substance: TRIMETAZIDINE
     Indication: NON-COMPACTION CARDIOMYOPATHY
     Dosage: UNK
     Route: 065
  7. RAMIPRIL. [Suspect]
     Active Substance: RAMIPRIL
     Indication: NON-COMPACTION CARDIOMYOPATHY
     Route: 065

REACTIONS (4)
  - Ventricular extrasystoles [Recovering/Resolving]
  - Atrial fibrillation [Recovering/Resolving]
  - Iron deficiency [Recovering/Resolving]
  - Cough [Recovered/Resolved]
